FAERS Safety Report 15308119 (Version 1)
Quarter: 2018Q3

REPORT INFORMATION
  Report Type: Spontaneous
  Country: AU (occurrence: AU)
  Receive Date: 20180822
  Receipt Date: 20180822
  Transmission Date: 20181010
  Serious: Yes (Hospitalization, Other)
  Sender: FDA-Public Use
  Company Number: AU-MYLANLABS-2018M1061918

PATIENT
  Age: 79 Year
  Sex: Male

DRUGS (8)
  1. CYCLOPHOSPHAMIDE. [Suspect]
     Active Substance: CYCLOPHOSPHAMIDE
     Indication: DIFFUSE LARGE B-CELL LYMPHOMA STAGE IV
     Dosage: ON DAY 1 OF 21?DAY CYCLE
     Route: 042
  2. RITUXIMAB. [Suspect]
     Active Substance: RITUXIMAB
     Indication: DIFFUSE LARGE B-CELL LYMPHOMA STAGE IV
     Dosage: ON DAY 1 OF 21?DAY CYCLE
     Route: 042
  3. IBRUTINIB [Suspect]
     Active Substance: IBRUTINIB
     Indication: DIFFUSE LARGE B-CELL LYMPHOMA STAGE IV
     Route: 048
  4. DOXORUBICIN [Suspect]
     Active Substance: DOXORUBICIN
     Indication: DIFFUSE LARGE B-CELL LYMPHOMA STAGE IV
     Dosage: ON DAY 1 OF 21?DAY CYCLE
     Route: 042
  5. METHOTREXATE. [Suspect]
     Active Substance: METHOTREXATE
     Indication: DIFFUSE LARGE B-CELL LYMPHOMA STAGE IV
     Route: 065
  6. VINCRISTINE [Suspect]
     Active Substance: VINCRISTINE
     Indication: DIFFUSE LARGE B-CELL LYMPHOMA STAGE IV
     Dosage: DAY 1 OF 21?DAY CYCLE
     Route: 042
  7. PREDNISOLONE. [Suspect]
     Active Substance: PREDNISOLONE
     Indication: DIFFUSE LARGE B-CELL LYMPHOMA STAGE IV
     Dosage: DAYS 1?5 OF THE 21?DAY CYCLE
     Route: 065
  8. ISONIAZID. [Concomitant]
     Active Substance: ISONIAZID
     Indication: TUBERCULOSIS
     Route: 048

REACTIONS (5)
  - Candida infection [Unknown]
  - Cryptococcosis [Recovering/Resolving]
  - Pulmonary fibrosis [Unknown]
  - Infectious pleural effusion [Unknown]
  - Lung infection [Recovering/Resolving]
